FAERS Safety Report 8967078 (Version 1)
Quarter: 2012Q4

REPORT INFORMATION
  Report Type: 
  Country: AU (occurrence: AU)
  Receive Date: 20121217
  Receipt Date: 20121217
  Transmission Date: 20130627
  Serious: Yes (Life-Threatening)
  Sender: FDA-Public Use
  Company Number: AU-SANOFI-AVENTIS-2012SA090938

PATIENT
  Age: 40 Year
  Sex: Male
  Weight: 80 kg

DRUGS (3)
  1. STILNOX [Suspect]
     Indication: SLEEP DISORDER
     Route: 048
  2. DEXAMFETAMINE [Concomitant]
  3. TAMSULOSIN [Concomitant]

REACTIONS (2)
  - Aggression [Not Recovered/Not Resolved]
  - Drug dispensing error [Unknown]
